FAERS Safety Report 6919323-7 (Version None)
Quarter: 2010Q3

REPORT INFORMATION
  Report Type: 
  Country: None (occurrence: None)
  Receive Date: 20100811
  Receipt Date: 20100804
  Transmission Date: 20110219
  Serious: Yes (Hospitalization)
  Sender: FDA-Public Use
  Company Number: A0874691A

PATIENT
  Age: 53 Year
  Sex: Male
  Weight: 97.7 kg

DRUGS (8)
  1. LAMICTAL [Suspect]
     Indication: PANIC ATTACK
     Dosage: 300MG PER DAY
     Route: 065
     Dates: start: 20100201, end: 20100601
  2. ALPRAZOLAM [Suspect]
     Indication: PANIC ATTACK
     Dosage: 1MG PER DAY
     Dates: start: 20100501
  3. SEROQUEL [Concomitant]
     Indication: PANIC ATTACK
     Dosage: 200MG PER DAY
  4. CARBAMAZEPINE [Concomitant]
     Dosage: 600MG PER DAY
     Dates: start: 20100201
  5. HEART MEDICATION [Concomitant]
  6. ANTIHYPERTENSIVE [Concomitant]
  7. LYRICA [Concomitant]
     Indication: RHEUMATOID ARTHRITIS
  8. CLONAZEPAM [Concomitant]
     Dosage: 1MG PER DAY

REACTIONS (11)
  - ABASIA [None]
  - ARTHRALGIA [None]
  - DRUG INEFFECTIVE [None]
  - HEAD INJURY [None]
  - LOSS OF CONSCIOUSNESS [None]
  - MOVEMENT DISORDER [None]
  - MUSCLE SPASMS [None]
  - MYALGIA [None]
  - PAIN [None]
  - PANIC ATTACK [None]
  - RASH [None]
